FAERS Safety Report 5625323-X (Version None)
Quarter: 2008Q1

REPORT INFORMATION
  Report Type: 
  Country: None (occurrence: None)
  Receive Date: 20080213
  Receipt Date: 20080208
  Transmission Date: 20080703
  Serious: Yes (Death)
  Sender: FDA-Public Use
  Company Number: IN-BRISTOL-MYERS SQUIBB COMPANY-14071914

PATIENT
  Age: 56 Year
  Sex: Male

DRUGS (5)
  1. SAXAGLIPTIN [Suspect]
     Indication: TYPE 2 DIABETES MELLITUS
     Dosage: BOTTLE1:31-5-07/08-2-08 PO; BOTTLE 2:31-5-07/08-2-08 PO; BOTTLE 3:06-6-07/08-2-08 PO.
     Route: 048
     Dates: start: 20070531, end: 20080208
  2. BLINDED: PLACEBO [Suspect]
     Indication: TYPE 2 DIABETES MELLITUS
     Dates: start: 20070531, end: 20080208
  3. METFORMIN HCL [Suspect]
     Indication: TYPE 2 DIABETES MELLITUS
     Dates: start: 20070606, end: 20080208
  4. TELMISARTAN [Concomitant]
     Dates: start: 20070510, end: 20080208
  5. HYDROCHLOROTHIAZIDE [Concomitant]
     Dates: start: 20071011, end: 20080208

REACTIONS (1)
  - SUDDEN CARDIAC DEATH [None]
